FAERS Safety Report 16000505 (Version 1)
Quarter: 2019Q1

REPORT INFORMATION
  Report Type: Spontaneous
  Country: JP (occurrence: JP)
  Receive Date: 20190225
  Receipt Date: 20190225
  Transmission Date: 20190418
  Serious: Yes (Death)
  Sender: FDA-Public Use
  Company Number: JP-BAYER-2019-033254

PATIENT
  Age: 70 Year
  Sex: Female

DRUGS (1)
  1. EMPECID [Suspect]
     Active Substance: CLOTRIMAZOLE
     Indication: ORAL CANDIDIASIS
     Dosage: UNK, ONCE
     Route: 049
     Dates: start: 20190214, end: 20190214

REACTIONS (3)
  - Dysphagia [None]
  - Sensation of foreign body [Unknown]
  - Death [Fatal]

NARRATIVE: CASE EVENT DATE: 20190215
